FAERS Safety Report 11614695 (Version 1)
Quarter: 2015Q4

REPORT INFORMATION
  Report Type: Spontaneous
  Country: US (occurrence: None)
  Receive Date: 20151008
  Receipt Date: 20151008
  Transmission Date: 20160304
  Serious: No
  Sender: FDA-Public Use
  Company Number: None

PATIENT
  Age: 31 Year
  Sex: Female
  Weight: 72.58 kg

DRUGS (1)
  1. LABETALOL 100 MG [Suspect]
     Active Substance: LABETALOL HYDROCHLORIDE
     Indication: HYPERTENSION
     Route: 048

REACTIONS (4)
  - Product substitution issue [None]
  - Heart rate increased [None]
  - Product quality issue [None]
  - Blood pressure increased [None]

NARRATIVE: CASE EVENT DATE: 20150918
